FAERS Safety Report 5034023-9 (Version None)
Quarter: 2006Q2

REPORT INFORMATION
  Report Type: 
  Country: None (occurrence: None)
  Receive Date: 20060512
  Receipt Date: 20051013
  Transmission Date: 20061013
  Serious: Yes (Other)
  Sender: FDA-Public Use
  Company Number: OSCN-PR-0510S-0207

PATIENT
  Age: 41 Year
  Sex: Female
  Weight: 58.9676 kg

DRUGS (2)
  1. OMNISCAN [Suspect]
     Indication: BREAST MASS
     Dosage: SEE IMAGE.
     Route: 042
     Dates: start: 20051004, end: 20051004
  2. OMNISCAN [Suspect]
     Indication: BREAST MASS
     Dosage: SEE IMAGE.
     Route: 042
     Dates: start: 20051005, end: 20051005

REACTIONS (3)
  - FLUSHING [None]
  - GRAND MAL CONVULSION [None]
  - INJECTION SITE PAIN [None]
